FAERS Safety Report 22185577 (Version 1)
Quarter: 2023Q2

REPORT INFORMATION
  Report Type: Spontaneous
  Country: US (occurrence: None)
  Receive Date: 20230406
  Receipt Date: 20230406
  Transmission Date: 20230721
  Serious: Yes (Disabling, Other)
  Sender: FDA-Public Use
  Company Number: None

PATIENT
  Age: 82 Year
  Sex: Male
  Weight: 54 kg

DRUGS (1)
  1. DABIGATRAN ETEXILATE MESYLATE [Suspect]
     Active Substance: DABIGATRAN ETEXILATE MESYLATE
     Indication: Anticoagulant therapy
     Dosage: OTHER QUANTITY : 180 CAPSULE(S);?FREQUENCY : TWICE A DAY;?
     Route: 048

REACTIONS (2)
  - Oesophageal carcinoma [None]
  - Gastric cancer stage I [None]

NARRATIVE: CASE EVENT DATE: 20230207
